FAERS Safety Report 17273221 (Version 1)
Quarter: 2020Q1

REPORT INFORMATION
  Report Type: Spontaneous
  Country: US (occurrence: US)
  Receive Date: 20191224
  Receipt Date: 20191224
  Transmission Date: 20200409
  Serious: Yes (Hospitalization)
  Sender: FDA-Public Use
  Company Number: None

PATIENT
  Age: 82 Year
  Sex: Female

DRUGS (10)
  1. AZITHROMYCIN ANHYDROUS. [Concomitant]
     Active Substance: AZITHROMYCIN ANHYDROUS
  2. PERFOROMIST [Concomitant]
     Active Substance: FORMOTEROL FUMARATE DIHYDRATE
  3. MONTELUKAST [Concomitant]
     Active Substance: MONTELUKAST SODIUM
  4. TOBRAMYCIN 300MG/5ML 20ML NEB [Suspect]
     Active Substance: TOBRAMYCIN
     Indication: BRONCHIECTASIS
     Dosage: ?          OTHER DOSE:1/2 VIAL;?
     Route: 055
     Dates: start: 20141010
  5. PRENISONE [Concomitant]
     Active Substance: PREDNISONE
  6. BUDESONIDE. [Suspect]
     Active Substance: BUDESONIDE
  7. METOPROL TAR [Concomitant]
  8. PANOPRAZOLE [Concomitant]
  9. IPRATRPIUM, [Concomitant]
  10. ROSUVASTATIN. [Concomitant]
     Active Substance: ROSUVASTATIN

REACTIONS (2)
  - Bronchiectasis [None]
  - Pneumonia [None]

NARRATIVE: CASE EVENT DATE: 201911
